FAERS Safety Report 6286910-1 (Version None)
Quarter: 2009Q3

REPORT INFORMATION
  Report Type: 
  Country: None (occurrence: None)
  Receive Date: 20090724
  Receipt Date: 20090720
  Transmission Date: 20100115
  Serious: Yes (Death, Other)
  Sender: FDA-Public Use
  Company Number: 2009-02322

PATIENT
  Age: 49 Year
  Sex: Female

DRUGS (1)
  1. VELCADE [Suspect]
     Indication: MULTIPLE MYELOMA
     Dates: start: 20090603, end: 20090603

REACTIONS (7)
  - ABDOMINAL PAIN [None]
  - BLOOD CREATININE INCREASED [None]
  - DYSPHAGIA [None]
  - MOUTH ULCERATION [None]
  - PLATELET COUNT DECREASED [None]
  - PYREXIA [None]
  - THROMBOSIS [None]
